FAERS Safety Report 16459139 (Version 2)
Quarter: 2025Q3

REPORT INFORMATION
  Report Type: Spontaneous
  Country: EU (occurrence: EU)
  Receive Date: 20190620
  Receipt Date: 20250902
  Transmission Date: 20251021
  Serious: Yes (Other)
  Sender: MYLAN
  Company Number: None

PATIENT
  Age: 2 Year
  Sex: Male

DRUGS (10)
  1. MYCOPHENOLATE MOFETIL [Suspect]
     Active Substance: MYCOPHENOLATE MOFETIL
     Indication: Graft versus host disease
  2. MYCOPHENOLATE MOFETIL [Suspect]
     Active Substance: MYCOPHENOLATE MOFETIL
  3. ACYCLOVIR [Concomitant]
     Active Substance: ACYCLOVIR
  4. ACYCLOVIR [Concomitant]
     Active Substance: ACYCLOVIR
  5. METHYLPREDNISOLONE [Concomitant]
     Active Substance: METHYLPREDNISOLONE
     Indication: Immunosuppression
  6. TACROLIMUS [Concomitant]
     Active Substance: TACROLIMUS
     Indication: Immunosuppression
  7. BASILIXIMAB [Concomitant]
     Active Substance: BASILIXIMAB
     Indication: Immunosuppression
  8. GANCICLOVIR [Concomitant]
     Active Substance: GANCICLOVIR
  9. INOLIMOMAB [Concomitant]
     Active Substance: INOLIMOMAB
  10. AZATHIOPRINE [Concomitant]
     Active Substance: AZATHIOPRINE

REACTIONS (12)
  - Drug dependence [Unknown]
  - Drug ineffective [Unknown]
  - Epidermal necrosis [Recovered/Resolved]
  - Skin exfoliation [Recovered/Resolved]
  - Graft versus host disease [Recovering/Resolving]
  - Eosinophilia [Unknown]
  - Dermatitis [Recovered/Resolved]
  - Human herpesvirus 6 infection [Recovered/Resolved]
  - Biopsy skin abnormal [Recovered/Resolved]
  - Condition aggravated [Recovering/Resolving]
  - Rash maculo-papular [Recovered/Resolved]
  - Diarrhoea [Recovered/Resolved]
